FAERS Safety Report 11878840 (Version 2)
Quarter: 2016Q1

REPORT INFORMATION
  Report Type: Spontaneous
  Country: US (occurrence: US)
  Receive Date: 20151230
  Receipt Date: 20160111
  Transmission Date: 20160526
  Serious: No
  Sender: FDA-Public Use
  Company Number: US-009507513-1512USA007895

PATIENT
  Sex: Female
  Weight: 74.84 kg

DRUGS (2)
  1. ANESTHETIC [Suspect]
     Active Substance: BENZOCAINE\LIDOCAINE HYDROCHLORIDE
     Indication: ANKLE FRACTURE
     Dosage: UNK
  2. FOSAMAX [Suspect]
     Active Substance: ALENDRONATE SODIUM
     Indication: PROPHYLAXIS
     Dosage: 1 PILL, BID
     Route: 048
     Dates: start: 201504, end: 2015

REACTIONS (6)
  - Renal disorder [Unknown]
  - Intercepted medication error [Unknown]
  - Internal haemorrhage [Unknown]
  - Gastric disorder [Unknown]
  - Drug intolerance [Unknown]
  - Gastrointestinal wall thinning [Unknown]

NARRATIVE: CASE EVENT DATE: 2015
